FAERS Safety Report 16041171 (Version 1)
Quarter: 2019Q1

REPORT INFORMATION
  Report Type: Spontaneous
  Country: US (occurrence: US)
  Receive Date: 20190306
  Receipt Date: 20190306
  Transmission Date: 20190418
  Serious: No
  Sender: FDA-Public Use
  Company Number: US-AKORN PHARMACEUTICALS-2018AKN01787

PATIENT
  Age: 15 Year
  Sex: Male

DRUGS (6)
  1. MYORISAN [Suspect]
     Active Substance: ISOTRETINOIN
     Dosage: 20 MG, 1X/DAY
     Route: 048
     Dates: start: 20180607, end: 20180626
  2. MYORISAN [Suspect]
     Active Substance: ISOTRETINOIN
     Indication: ACNE
     Dosage: 40 MG, 1X/DAY
     Route: 048
     Dates: start: 20180424, end: 20180518
  3. MYORISAN [Suspect]
     Active Substance: ISOTRETINOIN
     Dosage: 40 MG, 1X/DAY
     Route: 048
     Dates: start: 20180626, end: 20181106
  4. MYORISAN [Suspect]
     Active Substance: ISOTRETINOIN
     Dosage: 40 MG, 1X/DAY, ^40/20^
     Dates: start: 20180518, end: 20180607
  5. LAMISIL [Concomitant]
     Active Substance: TERBINAFINE HYDROCHLORIDE
     Dosage: 250 MG, 1X/DAY
  6. MYORISAN [Suspect]
     Active Substance: ISOTRETINOIN
     Indication: ACNE
     Dosage: 20 MG, 1X/DAY; ^40/20^
     Route: 048
     Dates: start: 20180518, end: 20180607

REACTIONS (2)
  - Arthralgia [Unknown]
  - Off label use [Recovered/Resolved]

NARRATIVE: CASE EVENT DATE: 2018
